FAERS Safety Report 11479986 (Version 2)
Quarter: 2016Q1

REPORT INFORMATION
  Report Type: Report from Study
  Country: ES (occurrence: ES)
  Receive Date: 20150909
  Receipt Date: 20160229
  Transmission Date: 20160525
  Serious: Yes (Life-Threatening)
  Sender: FDA-Public Use
  Company Number: ES-SA-2015SA129744

PATIENT
  Age: 48 Year
  Sex: Male
  Weight: 89.6 kg

DRUGS (5)
  1. MOZOBIL [Suspect]
     Active Substance: PLERIXAFOR
     Indication: ACUTE MYELOID LEUKAEMIA
     Dosage: CYCLE1 DAY1
     Route: 042
     Dates: start: 20150821, end: 20150822
  2. FLUDARABINE [Suspect]
     Active Substance: FLUDARABINE PHOSPHATE
     Indication: ACUTE MYELOID LEUKAEMIA
     Dosage: CYCLE1 DAY1
     Route: 042
     Dates: start: 20150821, end: 20150822
  3. G-CSF [Suspect]
     Active Substance: GRANULOCYTE COLONY-STIMULATING FACTOR NOS
     Indication: ACUTE MYELOID LEUKAEMIA
     Dosage: CYCLE, DAY1
     Route: 058
     Dates: start: 20150821, end: 20150822
  4. IDARUBICIN [Suspect]
     Active Substance: IDARUBICIN
     Indication: ACUTE MYELOID LEUKAEMIA
     Dosage: CYCLE1 DAY1
     Route: 042
     Dates: start: 20150821, end: 20150822
  5. CYTARABINE. [Suspect]
     Active Substance: CYTARABINE
     Indication: ACUTE MYELOID LEUKAEMIA
     Route: 042
     Dates: start: 20150821, end: 20150822

REACTIONS (3)
  - Pulmonary oedema [Recovered/Resolved]
  - Hypotension [Recovered/Resolved]
  - Respiratory failure [Recovered/Resolved]

NARRATIVE: CASE EVENT DATE: 20150822
